FAERS Safety Report 25836866 (Version 1)
Quarter: 2025Q3

REPORT INFORMATION
  Report Type: Spontaneous
  Country: CN (occurrence: CN)
  Receive Date: 20250923
  Receipt Date: 20250923
  Transmission Date: 20251020
  Serious: Yes (Other)
  Sender: PFIZER
  Company Number: CN-PFIZER INC-PV202500113488

PATIENT
  Age: 54 Year
  Sex: Female
  Weight: 51 kg

DRUGS (4)
  1. EPIRUBICIN [Suspect]
     Active Substance: EPIRUBICIN
     Indication: Invasive breast carcinoma
     Dosage: 150 MG, 1X/DAY
     Route: 041
     Dates: start: 20250911, end: 20250911
  2. CYCLOPHOSPHAMIDE [Suspect]
     Active Substance: CYCLOPHOSPHAMIDE
     Indication: Invasive breast carcinoma
     Dosage: 0.7 G, 1X/DAY
     Route: 041
     Dates: start: 20250911, end: 20250911
  3. SODIUM CHLORIDE [Concomitant]
     Active Substance: SODIUM CHLORIDE
     Indication: Vehicle solution use
     Dosage: 100 ML, 1X/DAY
     Route: 041
     Dates: start: 20250911, end: 20250911
  4. SODIUM CHLORIDE [Concomitant]
     Active Substance: SODIUM CHLORIDE
     Dosage: 100 ML, 1X/DAY
     Route: 041
     Dates: start: 20250911, end: 20250911

REACTIONS (6)
  - Nausea [Recovering/Resolving]
  - Disease recurrence [Recovering/Resolving]
  - Gastrooesophageal reflux disease [Recovering/Resolving]
  - Disease recurrence [Recovering/Resolving]
  - Retching [Recovering/Resolving]
  - Decreased appetite [Recovering/Resolving]

NARRATIVE: CASE EVENT DATE: 20250911
